FAERS Safety Report 10677052 (Version 2)
Quarter: 2014Q4

REPORT INFORMATION
  Report Type: Report from Study
  Country: US (occurrence: US)
  Receive Date: 20141226
  Receipt Date: 20141226
  Transmission Date: 20150529
  Serious: No
  Sender: FDA-Public Use
  Company Number: US-SA-2014SA111290

PATIENT
  Age: 49 Year
  Sex: Male

DRUGS (9)
  1. KYNAMRO [Suspect]
     Active Substance: MIPOMERSEN SODIUM
     Indication: TYPE IIA HYPERLIPIDAEMIA
     Route: 058
     Dates: start: 20140813
  2. TRAZODONE [Concomitant]
     Active Substance: TRAZODONE HYDROCHLORIDE
     Indication: AFFECTIVE DISORDER
     Dates: start: 200509
  3. AMBIEN [Concomitant]
     Active Substance: ZOLPIDEM TARTRATE
     Indication: SLEEP DISORDER
     Dates: start: 200406
  4. MOBIC [Concomitant]
     Active Substance: MELOXICAM
     Indication: ARTHRITIS
     Dates: start: 201203
  5. LISINOPRIL. [Concomitant]
     Active Substance: LISINOPRIL
     Indication: BLOOD PRESSURE
     Dates: start: 200806
  6. METOPROLOL [Concomitant]
     Active Substance: METOPROLOL
     Indication: CARDIAC DISORDER
     Dates: start: 201006
  7. KYNAMRO [Suspect]
     Active Substance: MIPOMERSEN SODIUM
     Indication: TYPE IIA HYPERLIPIDAEMIA
     Route: 058
     Dates: start: 20140813
  8. KYNAMRO [Suspect]
     Active Substance: MIPOMERSEN SODIUM
     Indication: TYPE IIA HYPERLIPIDAEMIA
     Route: 058
     Dates: start: 20140813
  9. OMEPRAZOLE. [Concomitant]
     Active Substance: OMEPRAZOLE
     Indication: DYSPEPSIA
     Dates: start: 201405

REACTIONS (15)
  - Injection site swelling [Recovered/Resolved]
  - Abdominal pain upper [Not Recovered/Not Resolved]
  - Sinusitis [Not Recovered/Not Resolved]
  - Injection site pain [Not Recovered/Not Resolved]
  - Injection site bruising [Not Recovered/Not Resolved]
  - Injection site induration [Recovered/Resolved]
  - Injection site pain [Recovered/Resolved]
  - Injection site erythema [Unknown]
  - Influenza like illness [Recovered/Resolved]
  - Chills [Recovered/Resolved]
  - Cough [Not Recovered/Not Resolved]
  - Nasopharyngitis [Not Recovered/Not Resolved]
  - Aspartate aminotransferase increased [Unknown]
  - Nausea [Recovered/Resolved]
  - Asthenia [Unknown]

NARRATIVE: CASE EVENT DATE: 2014
